FAERS Safety Report 7817848-3 (Version None)
Quarter: 2011Q4

REPORT INFORMATION
  Report Type: 
  Country: None (occurrence: None)
  Receive Date: 20111017
  Receipt Date: 20111012
  Transmission Date: 20120403
  Serious: Yes (Death)
  Sender: FDA-Public Use
  Company Number: US-PFIZER INC-2011200796

PATIENT
  Sex: Male

DRUGS (1)
  1. CAMPTOSAR [Suspect]
     Indication: GALLBLADDER CANCER
     Dosage: 405 MG, EVERY 2 WEEKS

REACTIONS (2)
  - DISEASE PROGRESSION [None]
  - GALLBLADDER CANCER [None]
